FAERS Safety Report 4484443-6 (Version None)
Quarter: 2004Q4

REPORT INFORMATION
  Report Type: 
  Country: None (occurrence: None)
  Receive Date: 20041025
  Receipt Date: 20041007
  Transmission Date: 20050328
  Serious: Yes (Disabling)
  Sender: FDA-Public Use
  Company Number: TRP_0014_2004

PATIENT
  Age: 47 Year
  Sex: Female
  Weight: 72.5755 kg

DRUGS (6)
  1. RIBASPHERE [Suspect]
     Indication: HEPATITIS C
     Dosage: 1200 MG QDAY PO
     Route: 048
     Dates: start: 20040401, end: 20040924
  2. PEG-INTRON [Suspect]
     Indication: HEPATITIS C
     Dosage: 150 MCG QWK SC
     Route: 058
     Dates: start: 20031031, end: 20040924
  3. REBETOL [Suspect]
     Indication: HEPATITIS C
     Dosage: 1200 MG QDAY PO
     Route: 048
     Dates: start: 20031031, end: 20040401
  4. NAPROXEN [Concomitant]
  5. PREVACID [Concomitant]
  6. XANAX [Concomitant]

REACTIONS (15)
  - ALANINE AMINOTRANSFERASE INCREASED [None]
  - ANAEMIA [None]
  - ASPARTATE AMINOTRANSFERASE INCREASED [None]
  - BENIGN LARYNGEAL NEOPLASM [None]
  - BLOOD THYROID STIMULATING HORMONE INCREASED [None]
  - DRY THROAT [None]
  - INFLAMMATION [None]
  - LARYNGEAL DISORDER [None]
  - LARYNGEAL OEDEMA [None]
  - NEUTROPENIA [None]
  - PHARYNGOLARYNGEAL PAIN [None]
  - THROMBOCYTOPENIA [None]
  - TORTICOLLIS [None]
  - VIRAL INFECTION [None]
  - VOCAL CORD PARALYSIS [None]
